FAERS Safety Report 4503042-0 (Version None)
Quarter: 2004Q4

REPORT INFORMATION
  Report Type: 
  Country: None (occurrence: None)
  Receive Date: 20041116
  Receipt Date: 20041116
  Transmission Date: 20050328
  Serious: Yes (Hospitalization)
  Sender: FDA-Public Use
  Company Number: None

PATIENT
  Age: 84 Year
  Sex: Male
  Weight: 80.2867 kg

DRUGS (15)
  1. FUROSEMIDE [Suspect]
     Indication: HYPERTENSION
     Dosage: 20 MG DAILY
     Dates: start: 20040618, end: 20040718
  2. METOPROLOL [Suspect]
     Indication: CARDIAC FAILURE
     Dosage: 25 MG BID
     Dates: start: 20031001, end: 20040718
  3. METOPROLOL [Suspect]
     Indication: DIABETES MELLITUS
     Dosage: 25 MG BID
     Dates: start: 20031001, end: 20040718
  4. ALBUTEROL 90/IPRATROP INH [Concomitant]
  5. ALBUTEROL ORAL INH [Concomitant]
  6. BACITRACIN [Concomitant]
  7. DOCUSATE CA [Concomitant]
  8. ASPIRIN [Concomitant]
  9. IBUPROFEN [Concomitant]
  10. METOPROLOL TARTRATE [Concomitant]
  11. MULTI-VITAMIN [Concomitant]
  12. PSYLLIUM SF [Concomitant]
  13. RANITIDINE HCL [Concomitant]
  14. SORBITOL [Concomitant]
  15. VITAMIN E [Concomitant]

REACTIONS (3)
  - DEHYDRATION [None]
  - FEELING ABNORMAL [None]
  - HYPOTENSION [None]
